FAERS Safety Report 8576070-6 (Version None)
Quarter: 2012Q3

REPORT INFORMATION
  Report Type: 
  Country: None (occurrence: None)
  Receive Date: 20120807
  Receipt Date: 20120730
  Transmission Date: 20120928
  Serious: No
  Sender: FDA-Public Use
  Company Number: JP-B.I. PHARMACEUTICALS,INC./RIDGEFIELD-2012-BP-13873NB

PATIENT
  Sex: Male
  Weight: 73.4 kg

DRUGS (7)
  1. EPINASTINE HYDROCHLORIDE [Concomitant]
     Route: 065
  2. SUNRYTHM [Suspect]
     Indication: ARRHYTHMIA
     Dosage: 100 MG
     Route: 048
     Dates: start: 20120428, end: 20120623
  3. ALISRYTHM [Concomitant]
     Indication: ARRHYTHMIA
     Dosage: 100 MG
     Route: 048
     Dates: start: 20120428, end: 20120623
  4. PRADAXA [Suspect]
     Indication: ATRIAL FIBRILLATION
     Dosage: 220 MG
     Route: 048
     Dates: start: 20120428
  5. PROLMON [Concomitant]
     Indication: HEPATIC FUNCTION ABNORMAL
     Route: 048
  6. HYDANTOL F [Concomitant]
     Indication: EPILEPSY
     Route: 048
  7. PHENYTOIN [Suspect]
     Indication: EPILEPSY
     Dosage: 25 MG
     Route: 048

REACTIONS (2)
  - GASTRITIS [None]
  - INHIBITORY DRUG INTERACTION [None]
